FAERS Safety Report 24533936 (Version 2)
Quarter: 2024Q4

REPORT INFORMATION
  Report Type: Spontaneous
  Country: CA (occurrence: CA)
  Receive Date: 20241022
  Receipt Date: 20241025
  Transmission Date: 20250115
  Serious: Yes (Other)
  Sender: ALEXION PHARMACEUTICALS
  Company Number: CA-HALEON-2198328

PATIENT
  Age: 41 Year

DRUGS (336)
  1. ESOMEPRAZOLE [Suspect]
     Active Substance: ESOMEPRAZOLE
     Route: 065
  2. ESOMEPRAZOLE [Suspect]
     Active Substance: ESOMEPRAZOLE
  3. ESOMEPRAZOLE [Suspect]
     Active Substance: ESOMEPRAZOLE
     Route: 065
  4. ESOMEPRAZOLE [Suspect]
     Active Substance: ESOMEPRAZOLE
  5. ESOMEPRAZOLE [Suspect]
     Active Substance: ESOMEPRAZOLE
     Route: 065
  6. ESOMEPRAZOLE [Suspect]
     Active Substance: ESOMEPRAZOLE
  7. ESOMEPRAZOLE [Suspect]
     Active Substance: ESOMEPRAZOLE
     Route: 065
  8. ESOMEPRAZOLE [Suspect]
     Active Substance: ESOMEPRAZOLE
  9. PROPRANOLOL HYDROCHLORIDE [Suspect]
     Active Substance: PROPRANOLOL HYDROCHLORIDE
     Dosage: THERAPY DURATION: 2 YEARS
     Route: 065
  10. PROPRANOLOL HYDROCHLORIDE [Suspect]
     Active Substance: PROPRANOLOL HYDROCHLORIDE
     Dosage: THERAPY DURATION: 2 YEARS
  11. PROPRANOLOL HYDROCHLORIDE [Suspect]
     Active Substance: PROPRANOLOL HYDROCHLORIDE
     Dosage: THERAPY DURATION: 2 YEARS
     Route: 065
  12. PROPRANOLOL HYDROCHLORIDE [Suspect]
     Active Substance: PROPRANOLOL HYDROCHLORIDE
     Dosage: THERAPY DURATION: 2 YEARS
  13. PROPRANOLOL HYDROCHLORIDE [Suspect]
     Active Substance: PROPRANOLOL HYDROCHLORIDE
     Route: 065
  14. PROPRANOLOL HYDROCHLORIDE [Suspect]
     Active Substance: PROPRANOLOL HYDROCHLORIDE
  15. PROPRANOLOL HYDROCHLORIDE [Suspect]
     Active Substance: PROPRANOLOL HYDROCHLORIDE
     Route: 065
  16. PROPRANOLOL HYDROCHLORIDE [Suspect]
     Active Substance: PROPRANOLOL HYDROCHLORIDE
  17. PROPRANOLOL HYDROCHLORIDE [Suspect]
     Active Substance: PROPRANOLOL HYDROCHLORIDE
     Route: 065
  18. PROPRANOLOL HYDROCHLORIDE [Suspect]
     Active Substance: PROPRANOLOL HYDROCHLORIDE
  19. PROPRANOLOL HYDROCHLORIDE [Suspect]
     Active Substance: PROPRANOLOL HYDROCHLORIDE
     Route: 065
  20. PROPRANOLOL HYDROCHLORIDE [Suspect]
     Active Substance: PROPRANOLOL HYDROCHLORIDE
  21. PROPRANOLOL HYDROCHLORIDE [Suspect]
     Active Substance: PROPRANOLOL HYDROCHLORIDE
     Dosage: UNKNOWN/UNKNOWN
     Route: 065
  22. PROPRANOLOL HYDROCHLORIDE [Suspect]
     Active Substance: PROPRANOLOL HYDROCHLORIDE
     Dosage: UNKNOWN/UNKNOWN
  23. PROPRANOLOL HYDROCHLORIDE [Suspect]
     Active Substance: PROPRANOLOL HYDROCHLORIDE
     Dosage: UNKNOWN/UNKNOWN
     Route: 065
  24. PROPRANOLOL HYDROCHLORIDE [Suspect]
     Active Substance: PROPRANOLOL HYDROCHLORIDE
     Dosage: UNKNOWN/UNKNOWN
  25. LISINOPRIL [Suspect]
     Active Substance: LISINOPRIL
     Dosage: THERAPY DURATION: 152 DAYS
  26. LISINOPRIL [Suspect]
     Active Substance: LISINOPRIL
     Dosage: THERAPY DURATION: 152 DAYS
  27. LISINOPRIL [Suspect]
     Active Substance: LISINOPRIL
     Dosage: THERAPY DURATION: 152 DAYS
  28. LISINOPRIL [Suspect]
     Active Substance: LISINOPRIL
     Dosage: THERAPY DURATION: 152 DAYS
  29. LISINOPRIL [Suspect]
     Active Substance: LISINOPRIL
     Dosage: THERAPY DURATION: 54 DAYS
  30. LISINOPRIL [Suspect]
     Active Substance: LISINOPRIL
     Dosage: THERAPY DURATION: 54 DAYS
  31. LISINOPRIL [Suspect]
     Active Substance: LISINOPRIL
     Dosage: THERAPY DURATION: 54 DAYS
  32. LISINOPRIL [Suspect]
     Active Substance: LISINOPRIL
     Dosage: THERAPY DURATION: 54 DAYS
  33. LISINOPRIL [Suspect]
     Active Substance: LISINOPRIL
     Route: 065
  34. LISINOPRIL [Suspect]
     Active Substance: LISINOPRIL
  35. LISINOPRIL [Suspect]
     Active Substance: LISINOPRIL
     Route: 065
  36. LISINOPRIL [Suspect]
     Active Substance: LISINOPRIL
  37. ZESTRIL [Suspect]
     Active Substance: LISINOPRIL
  38. ZESTRIL [Suspect]
     Active Substance: LISINOPRIL
     Route: 065
  39. ACETAMINOPHEN [Suspect]
     Active Substance: ACETAMINOPHEN
     Indication: Product used for unknown indication
     Dosage: THERAPY DURATION: 9 DAYS
  40. ACETAMINOPHEN [Suspect]
     Active Substance: ACETAMINOPHEN
     Dosage: THERAPY DURATION: 9 DAYS
     Route: 065
  41. AMOXICILLIN TRIHYDRATE [Suspect]
     Active Substance: AMOXICILLIN
     Indication: Product used for unknown indication
     Route: 065
  42. AMOXICILLIN TRIHYDRATE [Suspect]
     Active Substance: AMOXICILLIN
  43. AMOXICILLIN TRIHYDRATE [Suspect]
     Active Substance: AMOXICILLIN
     Dosage: THERAPY DURATION: 1 DAYS
     Route: 065
  44. AMOXICILLIN TRIHYDRATE [Suspect]
     Active Substance: AMOXICILLIN
     Dosage: THERAPY DURATION: 1 DAYS
  45. AMOXICILLIN TRIHYDRATE [Suspect]
     Active Substance: AMOXICILLIN
     Dosage: UNK
     Route: 065
  46. AMOXICILLIN TRIHYDRATE [Suspect]
     Active Substance: AMOXICILLIN
     Dosage: UNK
  47. AZITHROMYCIN [Suspect]
     Active Substance: AZITHROMYCIN
     Indication: Migraine
     Dosage: THERAPY DURATION: 1 DAYS
     Route: 065
  48. AZITHROMYCIN [Suspect]
     Active Substance: AZITHROMYCIN
     Dosage: THERAPY DURATION: 1 DAYS
  49. AZITHROMYCIN [Suspect]
     Active Substance: AZITHROMYCIN
     Dosage: UNK
     Route: 065
  50. AZITHROMYCIN [Suspect]
     Active Substance: AZITHROMYCIN
     Dosage: UNK
  51. BOTULINUM TOXIN TYPE A [Suspect]
     Active Substance: BOTULINUM TOXIN TYPE A
     Indication: Product used for unknown indication
     Dosage: DOSAGE FORM: POWDER FOR SOLUTION, THERAPY DURATION: 59 DAYS
     Route: 065
  52. BOTULINUM TOXIN TYPE A [Suspect]
     Active Substance: BOTULINUM TOXIN TYPE A
     Dosage: DOSAGE FORM: POWDER FOR SOLUTION, THERAPY DURATION: 59 DAYS
  53. BOTULINUM TOXIN TYPE A [Suspect]
     Active Substance: BOTULINUM TOXIN TYPE A
     Dosage: THERAPY DURATION: 1 DAYS
  54. BOTULINUM TOXIN TYPE A [Suspect]
     Active Substance: BOTULINUM TOXIN TYPE A
     Dosage: THERAPY DURATION: 1 DAYS
     Route: 065
  55. BOTULINUM TOXIN TYPE A [Suspect]
     Active Substance: BOTULINUM TOXIN TYPE A
     Dosage: THERAPY DURATION: 63 DAYS
     Route: 065
  56. BOTULINUM TOXIN TYPE A [Suspect]
     Active Substance: BOTULINUM TOXIN TYPE A
     Dosage: THERAPY DURATION: 63 DAYS
  57. BOTULINUM TOXIN TYPE A [Suspect]
     Active Substance: BOTULINUM TOXIN TYPE A
     Dosage: THERAPY DURATION: 181 DAYS
     Route: 065
  58. BOTULINUM TOXIN TYPE A [Suspect]
     Active Substance: BOTULINUM TOXIN TYPE A
     Dosage: THERAPY DURATION: 181 DAYS
  59. BOTULINUM TOXIN TYPE A [Suspect]
     Active Substance: BOTULINUM TOXIN TYPE A
     Dosage: THERAPY DURATION: 62 DAYS
     Route: 065
  60. BOTULINUM TOXIN TYPE A [Suspect]
     Active Substance: BOTULINUM TOXIN TYPE A
     Dosage: THERAPY DURATION: 62 DAYS
  61. BOTULINUM TOXIN TYPE A [Suspect]
     Active Substance: BOTULINUM TOXIN TYPE A
     Dosage: THERAPY DURATION: 61 DAYS
     Route: 065
  62. BOTULINUM TOXIN TYPE A [Suspect]
     Active Substance: BOTULINUM TOXIN TYPE A
     Dosage: THERAPY DURATION: 61 DAYS
  63. CLOTRIMAZOLE\FLUCONAZOLE [Suspect]
     Active Substance: CLOTRIMAZOLE\FLUCONAZOLE
     Indication: Product used for unknown indication
  64. CLOTRIMAZOLE\FLUCONAZOLE [Suspect]
     Active Substance: CLOTRIMAZOLE\FLUCONAZOLE
     Route: 065
  65. CIPRO [Suspect]
     Active Substance: CIPROFLOXACIN HYDROCHLORIDE
     Indication: Migraine
  66. CIPRO [Suspect]
     Active Substance: CIPROFLOXACIN HYDROCHLORIDE
     Route: 065
  67. CIPRO [Suspect]
     Active Substance: CIPROFLOXACIN HYDROCHLORIDE
     Route: 065
  68. CIPRO [Suspect]
     Active Substance: CIPROFLOXACIN HYDROCHLORIDE
  69. CIPRO [Suspect]
     Active Substance: CIPROFLOXACIN HYDROCHLORIDE
     Dosage: THERAPY DURATION: 152 DAYS
     Route: 065
  70. CIPRO [Suspect]
     Active Substance: CIPROFLOXACIN HYDROCHLORIDE
     Dosage: THERAPY DURATION: 152 DAYS
  71. CIPRO [Suspect]
     Active Substance: CIPROFLOXACIN HYDROCHLORIDE
     Dosage: THERAPY DURATION: 1 DAYS
     Route: 065
  72. CIPRO [Suspect]
     Active Substance: CIPROFLOXACIN HYDROCHLORIDE
     Dosage: THERAPY DURATION: 1 DAYS
  73. CLARITHROMYCIN [Suspect]
     Active Substance: CLARITHROMYCIN
     Indication: Product used for unknown indication
     Dosage: THERAPY DURATION: 1 DAYS
  74. CLARITHROMYCIN [Suspect]
     Active Substance: CLARITHROMYCIN
     Dosage: THERAPY DURATION: 1 DAYS
     Route: 065
  75. CLARITHROMYCIN [Suspect]
     Active Substance: CLARITHROMYCIN
     Dosage: THERAPY DURATION: 1 DAYS
  76. CLARITHROMYCIN [Suspect]
     Active Substance: CLARITHROMYCIN
     Dosage: THERAPY DURATION: 1 DAYS
     Route: 065
  77. CODEINE [Suspect]
     Active Substance: CODEINE
     Indication: Migraine
  78. CODEINE [Suspect]
     Active Substance: CODEINE
     Route: 065
  79. CODEINE [Suspect]
     Active Substance: CODEINE
     Dosage: THERAPY DURATION: 1 DAYS
  80. CODEINE [Suspect]
     Active Substance: CODEINE
     Dosage: THERAPY DURATION: 1 DAYS
     Route: 065
  81. DEXAMETHASONE [Suspect]
     Active Substance: DEXAMETHASONE
     Indication: Migraine
  82. DEXAMETHASONE [Suspect]
     Active Substance: DEXAMETHASONE
     Route: 065
  83. DEXAMETHASONE [Suspect]
     Active Substance: DEXAMETHASONE
     Dosage: THERAPY DURATION: 1 DAYS
  84. DEXAMETHASONE [Suspect]
     Active Substance: DEXAMETHASONE
     Dosage: THERAPY DURATION: 1 DAYS
     Route: 065
  85. DULOXETINE HYDROCHLORIDE [Suspect]
     Active Substance: DULOXETINE HYDROCHLORIDE
     Indication: Migraine
     Dosage: DOSE FORM: DELAYED RELEASE CAPSULE
     Route: 065
  86. DULOXETINE HYDROCHLORIDE [Suspect]
     Active Substance: DULOXETINE HYDROCHLORIDE
     Dosage: DOSE FORM: DELAYED RELEASE CAPSULE
  87. DULOXETINE HYDROCHLORIDE [Suspect]
     Active Substance: DULOXETINE HYDROCHLORIDE
     Dosage: UNKNOWN/UNKNOWN
     Route: 065
  88. DULOXETINE HYDROCHLORIDE [Suspect]
     Active Substance: DULOXETINE HYDROCHLORIDE
     Dosage: UNKNOWN/UNKNOWN
  89. HYDROMORPHONE [Suspect]
     Active Substance: HYDROMORPHONE
     Indication: Migraine
     Dosage: THERAPY DURATION: 1 DAYS
  90. HYDROMORPHONE [Suspect]
     Active Substance: HYDROMORPHONE
     Dosage: THERAPY DURATION: 1 DAYS
     Route: 065
  91. HYDROMORPHONE [Suspect]
     Active Substance: HYDROMORPHONE
     Dosage: THERAPY DURATION: 136 DAYS
     Route: 065
  92. HYDROMORPHONE [Suspect]
     Active Substance: HYDROMORPHONE
     Dosage: THERAPY DURATION: 136 DAYS
  93. HYDROMORPHONE [Suspect]
     Active Substance: HYDROMORPHONE
     Dosage: THERAPY DURATION: 4 DAYS
     Route: 065
  94. HYDROMORPHONE [Suspect]
     Active Substance: HYDROMORPHONE
     Dosage: THERAPY DURATION: 4 DAYS
  95. HYDROMORPHONE [Suspect]
     Active Substance: HYDROMORPHONE
     Dosage: THERAPY DURATION: 55 DAYS
     Route: 065
  96. HYDROMORPHONE [Suspect]
     Active Substance: HYDROMORPHONE
     Dosage: THERAPY DURATION: 55 DAYS
  97. HYDROMORPHONE [Suspect]
     Active Substance: HYDROMORPHONE
     Route: 065
  98. HYDROMORPHONE [Suspect]
     Active Substance: HYDROMORPHONE
  99. HYDROMORPHONE [Suspect]
     Active Substance: HYDROMORPHONE
     Dosage: THERAPY DURATION: 72 DAYS
     Route: 065
  100. HYDROMORPHONE [Suspect]
     Active Substance: HYDROMORPHONE
     Dosage: THERAPY DURATION: 72 DAYS
  101. HYDROMORPHONE [Suspect]
     Active Substance: HYDROMORPHONE
     Dosage: THERAPY DURATION: 55 DAYS
     Route: 065
  102. HYDROMORPHONE [Suspect]
     Active Substance: HYDROMORPHONE
     Dosage: THERAPY DURATION: 55 DAYS
  103. HYDROMORPHONE [Suspect]
     Active Substance: HYDROMORPHONE
     Dosage: THERAPY DURATION: 139 DAYS
     Route: 065
  104. HYDROMORPHONE [Suspect]
     Active Substance: HYDROMORPHONE
     Dosage: THERAPY DURATION: 139 DAYS
  105. HYDROMORPHONE [Suspect]
     Active Substance: HYDROMORPHONE
     Dosage: THERAPY DURATION: 158 DAYS
     Route: 065
  106. HYDROMORPHONE [Suspect]
     Active Substance: HYDROMORPHONE
     Dosage: THERAPY DURATION: 158 DAYS
  107. HYDROMORPHONE [Suspect]
     Active Substance: HYDROMORPHONE
     Dosage: THERAPY DURATION: 61 DAYS
     Route: 065
  108. HYDROMORPHONE [Suspect]
     Active Substance: HYDROMORPHONE
     Dosage: THERAPY DURATION: 61 DAYS
  109. HYDROMORPHONE [Suspect]
     Active Substance: HYDROMORPHONE
     Dosage: THERAPY DURATION: 140 DAYS
     Route: 065
  110. HYDROMORPHONE [Suspect]
     Active Substance: HYDROMORPHONE
     Dosage: THERAPY DURATION: 140 DAYS
  111. HYDROMORPHONE [Suspect]
     Active Substance: HYDROMORPHONE
     Dosage: THERAPY DURATION: 82 DAYS
     Route: 065
  112. HYDROMORPHONE [Suspect]
     Active Substance: HYDROMORPHONE
     Dosage: THERAPY DURATION: 82 DAYS
  113. INDOMETHACIN [Suspect]
     Active Substance: INDOMETHACIN
     Indication: Migraine
     Dosage: THERAPY DURATION: 1 DAYS
  114. INDOMETHACIN [Suspect]
     Active Substance: INDOMETHACIN
     Dosage: THERAPY DURATION: 1 DAYS
  115. INDOMETHACIN [Suspect]
     Active Substance: INDOMETHACIN
  116. INDOMETHACIN [Suspect]
     Active Substance: INDOMETHACIN
  117. INDOMETHACIN [Suspect]
     Active Substance: INDOMETHACIN
     Dosage: THERAPY DURATION: 52 DAYS
  118. INDOMETHACIN [Suspect]
     Active Substance: INDOMETHACIN
     Dosage: THERAPY DURATION: 52 DAYS
  119. INDOMETHACIN [Suspect]
     Active Substance: INDOMETHACIN
     Dosage: THERAPY DURATION: 63 DAYS
  120. INDOMETHACIN [Suspect]
     Active Substance: INDOMETHACIN
     Dosage: THERAPY DURATION: 63 DAYS
  121. INDOMETHACIN [Suspect]
     Active Substance: INDOMETHACIN
     Dosage: THERAPY DURATION: 143 HOURS
  122. INDOMETHACIN [Suspect]
     Active Substance: INDOMETHACIN
     Dosage: THERAPY DURATION: 143 HOURS
  123. INDOMETHACIN [Suspect]
     Active Substance: INDOMETHACIN
     Dosage: THERAPY DURATION: 143 HOURS
     Route: 065
  124. INDOMETHACIN [Suspect]
     Active Substance: INDOMETHACIN
     Dosage: THERAPY DURATION: 143 HOURS
  125. INDOMETHACIN [Suspect]
     Active Substance: INDOMETHACIN
     Dosage: THERAPY DURATION: 1 DAYS
  126. INDOMETHACIN [Suspect]
     Active Substance: INDOMETHACIN
     Dosage: THERAPY DURATION: 1 DAYS
  127. INDOMETHACIN [Suspect]
     Active Substance: INDOMETHACIN
     Dosage: THERAPY DURATION: 143 DAYS
  128. INDOMETHACIN [Suspect]
     Active Substance: INDOMETHACIN
     Dosage: THERAPY DURATION: 143 DAYS
  129. INDOMETHACIN [Suspect]
     Active Substance: INDOMETHACIN
     Dosage: THERAPY DURATION: 45 DAYS
  130. INDOMETHACIN [Suspect]
     Active Substance: INDOMETHACIN
     Dosage: THERAPY DURATION: 45 DAYS
  131. INDOMETHACIN [Suspect]
     Active Substance: INDOMETHACIN
     Dosage: THERAPY DURATION: 52 DAYS
  132. INDOMETHACIN [Suspect]
     Active Substance: INDOMETHACIN
     Dosage: THERAPY DURATION: 52 DAYS
  133. INDOMETHACIN [Suspect]
     Active Substance: INDOMETHACIN
     Dosage: THERAPY DURATION: 114 DAYS
  134. INDOMETHACIN [Suspect]
     Active Substance: INDOMETHACIN
     Dosage: THERAPY DURATION: 114 DAYS
  135. INDOMETHACIN [Suspect]
     Active Substance: INDOMETHACIN
     Dosage: THERAPY DURATION: 62 DAYS
  136. INDOMETHACIN [Suspect]
     Active Substance: INDOMETHACIN
     Dosage: THERAPY DURATION: 62 DAYS
  137. INDOMETHACIN [Suspect]
     Active Substance: INDOMETHACIN
     Dosage: THERAPY DURATION: 45 DAYS
  138. INDOMETHACIN [Suspect]
     Active Substance: INDOMETHACIN
     Dosage: THERAPY DURATION: 45 DAYS
  139. INDOMETHACIN [Suspect]
     Active Substance: INDOMETHACIN
     Dosage: THERAPY DURATION: 32 DAYS
  140. INDOMETHACIN [Suspect]
     Active Substance: INDOMETHACIN
     Dosage: THERAPY DURATION: 32 DAYS
  141. INDOMETHACIN [Suspect]
     Active Substance: INDOMETHACIN
     Dosage: THERAPY DURATION: 45 DAYS
  142. INDOMETHACIN [Suspect]
     Active Substance: INDOMETHACIN
     Dosage: THERAPY DURATION: 45 DAYS
  143. INDOMETHACIN [Suspect]
     Active Substance: INDOMETHACIN
     Dosage: THERAPY DURATION: 47 DAYS
  144. INDOMETHACIN [Suspect]
     Active Substance: INDOMETHACIN
     Dosage: THERAPY DURATION: 47 DAYS
  145. INDOMETHACIN [Suspect]
     Active Substance: INDOMETHACIN
     Dosage: THERAPY DURATION: 57 DAYS
  146. INDOMETHACIN [Suspect]
     Active Substance: INDOMETHACIN
     Dosage: THERAPY DURATION: 57 DAYS
  147. INDOMETHACIN [Suspect]
     Active Substance: INDOMETHACIN
     Dosage: THERAPY DURATION: 177 DAYS
  148. INDOMETHACIN [Suspect]
     Active Substance: INDOMETHACIN
     Dosage: THERAPY DURATION: 177 DAYS
  149. INDOMETHACIN [Suspect]
     Active Substance: INDOMETHACIN
     Dosage: THERAPY DURATION: 177 DAYS
  150. INDOMETHACIN [Suspect]
     Active Substance: INDOMETHACIN
     Dosage: THERAPY DURATION: 177 DAYS
  151. INDOMETHACIN [Suspect]
     Active Substance: INDOMETHACIN
     Dosage: THERAPY DURATION: 62 DAYS
  152. INDOMETHACIN [Suspect]
     Active Substance: INDOMETHACIN
     Dosage: THERAPY DURATION: 62 DAYS
  153. INDOMETHACIN [Suspect]
     Active Substance: INDOMETHACIN
     Dosage: THERAPY DURATION: 32 DAYS
  154. INDOMETHACIN [Suspect]
     Active Substance: INDOMETHACIN
     Dosage: THERAPY DURATION: 32 DAYS
  155. INDOMETHACIN [Suspect]
     Active Substance: INDOMETHACIN
     Dosage: THERAPY DURATION: 46 DAYS
  156. INDOMETHACIN [Suspect]
     Active Substance: INDOMETHACIN
     Dosage: THERAPY DURATION: 46 DAYS
  157. INDOMETHACIN [Suspect]
     Active Substance: INDOMETHACIN
     Dosage: THERAPY DURATION: 147 DAYS
  158. INDOMETHACIN [Suspect]
     Active Substance: INDOMETHACIN
     Dosage: THERAPY DURATION: 147 DAYS
  159. INDOMETHACIN [Suspect]
     Active Substance: INDOMETHACIN
     Dosage: THERAPY DURATION: 321 DAYS
  160. INDOMETHACIN [Suspect]
     Active Substance: INDOMETHACIN
     Dosage: THERAPY DURATION: 321 DAYS
  161. INDOMETHACIN [Suspect]
     Active Substance: INDOMETHACIN
     Dosage: THERAPY DURATION: 57 DAYS
  162. INDOMETHACIN [Suspect]
     Active Substance: INDOMETHACIN
     Dosage: THERAPY DURATION: 57 DAYS
  163. INDOMETHACIN [Suspect]
     Active Substance: INDOMETHACIN
     Dosage: THERAPY DURATION: 63 DAYS
  164. INDOMETHACIN [Suspect]
     Active Substance: INDOMETHACIN
     Dosage: THERAPY DURATION: 63 DAYS
  165. LANSOPRAZOLE [Suspect]
     Active Substance: LANSOPRAZOLE
     Dosage: DOSE FORM: CAPSULE, DELAYED RELEASE
  166. LANSOPRAZOLE [Suspect]
     Active Substance: LANSOPRAZOLE
     Dosage: DOSE FORM: CAPSULE, DELAYED RELEASE
     Route: 065
  167. MAXALT [Suspect]
     Active Substance: RIZATRIPTAN BENZOATE
     Indication: Migraine
     Dosage: UNKNOWN / UNKNOWN;
  168. MAXALT [Suspect]
     Active Substance: RIZATRIPTAN BENZOATE
     Dosage: UNKNOWN / UNKNOWN;
     Route: 065
  169. MAXALT [Suspect]
     Active Substance: RIZATRIPTAN BENZOATE
     Dosage: THERAPY DURATION: 1 DAYS
     Route: 065
  170. MAXALT [Suspect]
     Active Substance: RIZATRIPTAN BENZOATE
     Dosage: THERAPY DURATION: 1 DAYS
  171. MAXALT [Suspect]
     Active Substance: RIZATRIPTAN BENZOATE
     Dosage: THERAPY DURATION: 1 DAYS
     Route: 065
  172. MAXALT [Suspect]
     Active Substance: RIZATRIPTAN BENZOATE
     Dosage: THERAPY DURATION: 1 DAYS
  173. METOCLOPRAMIDE [Suspect]
     Active Substance: METOCLOPRAMIDE
     Indication: Migraine
  174. METOCLOPRAMIDE [Suspect]
     Active Substance: METOCLOPRAMIDE
     Route: 065
  175. METOCLOPRAMIDE [Suspect]
     Active Substance: METOCLOPRAMIDE
  176. METOCLOPRAMIDE [Suspect]
     Active Substance: METOCLOPRAMIDE
     Route: 065
  177. MOMETASONE FUROATE [Suspect]
     Active Substance: MOMETASONE FUROATE
     Indication: Product used for unknown indication
     Dosage: THERAPY DURATION: 144 DAYS
  178. MOMETASONE FUROATE [Suspect]
     Active Substance: MOMETASONE FUROATE
     Dosage: THERAPY DURATION: 144 DAYS
     Route: 065
  179. MOMETASONE FUROATE [Suspect]
     Active Substance: MOMETASONE FUROATE
     Dosage: THERAPY DURATION: 147 DAYS
     Route: 065
  180. MOMETASONE FUROATE [Suspect]
     Active Substance: MOMETASONE FUROATE
     Dosage: THERAPY DURATION: 147 DAYS
  181. MOMETASONE FUROATE [Suspect]
     Active Substance: MOMETASONE FUROATE
     Route: 065
  182. MOMETASONE FUROATE [Suspect]
     Active Substance: MOMETASONE FUROATE
  183. MOMETASONE FUROATE [Suspect]
     Active Substance: MOMETASONE FUROATE
     Route: 065
  184. MOMETASONE FUROATE [Suspect]
     Active Substance: MOMETASONE FUROATE
  185. PREDNISONE [Suspect]
     Active Substance: PREDNISONE
     Indication: Product used for unknown indication
  186. PREDNISONE [Suspect]
     Active Substance: PREDNISONE
     Route: 065
  187. PREDNISONE [Suspect]
     Active Substance: PREDNISONE
     Dosage: THERAPY DURATION: 1 DAYS
  188. PREDNISONE [Suspect]
     Active Substance: PREDNISONE
     Dosage: THERAPY DURATION: 1 DAYS
     Route: 065
  189. RABEPRAZOLE [Suspect]
     Active Substance: RABEPRAZOLE
     Indication: Migraine
     Dosage: THERAPY DURATION: 2 YEARS
  190. RABEPRAZOLE [Suspect]
     Active Substance: RABEPRAZOLE
     Dosage: THERAPY DURATION: 2 YEARS
     Route: 065
  191. RABEPRAZOLE [Suspect]
     Active Substance: RABEPRAZOLE
     Route: 065
  192. RABEPRAZOLE [Suspect]
     Active Substance: RABEPRAZOLE
  193. RABEPRAZOLE [Suspect]
     Active Substance: RABEPRAZOLE
     Dosage: THERAPY DURATION: 21 DAYS
     Route: 065
  194. RABEPRAZOLE [Suspect]
     Active Substance: RABEPRAZOLE
     Dosage: THERAPY DURATION: 21 DAYS
  195. RABEPRAZOLE [Suspect]
     Active Substance: RABEPRAZOLE
     Dosage: THERAPY DURATION: 144 DAYS
     Route: 065
  196. RABEPRAZOLE [Suspect]
     Active Substance: RABEPRAZOLE
     Dosage: THERAPY DURATION: 144 DAYS
  197. RABEPRAZOLE [Suspect]
     Active Substance: RABEPRAZOLE
     Dosage: THERAPY DURATION: 67 DAYS
     Route: 065
  198. RABEPRAZOLE [Suspect]
     Active Substance: RABEPRAZOLE
     Dosage: THERAPY DURATION: 67 DAYS
  199. RABEPRAZOLE [Suspect]
     Active Substance: RABEPRAZOLE
     Dosage: THERAPY DURATION: 62 DAYS
     Route: 065
  200. RABEPRAZOLE [Suspect]
     Active Substance: RABEPRAZOLE
     Dosage: THERAPY DURATION: 62 DAYS
  201. RABEPRAZOLE [Suspect]
     Active Substance: RABEPRAZOLE
     Dosage: THERAPY DURATION: 54 DAYS
     Route: 065
  202. RABEPRAZOLE [Suspect]
     Active Substance: RABEPRAZOLE
     Dosage: THERAPY DURATION: 54 DAYS
  203. RABEPRAZOLE [Suspect]
     Active Substance: RABEPRAZOLE
     Dosage: THERAPY DURATION: 140 DAYS
     Route: 065
  204. RABEPRAZOLE [Suspect]
     Active Substance: RABEPRAZOLE
     Dosage: THERAPY DURATION: 140 DAYS
  205. RABEPRAZOLE [Suspect]
     Active Substance: RABEPRAZOLE
     Dosage: THERAPY DURATION: 77 DAYS
     Route: 065
  206. RABEPRAZOLE [Suspect]
     Active Substance: RABEPRAZOLE
     Dosage: THERAPY DURATION: 77 DAYS
  207. RABEPRAZOLE [Suspect]
     Active Substance: RABEPRAZOLE
     Dosage: THERAPY DURATION: 137 DAYS
     Route: 065
  208. RABEPRAZOLE [Suspect]
     Active Substance: RABEPRAZOLE
     Dosage: THERAPY DURATION: 137 DAYS
  209. RABEPRAZOLE [Suspect]
     Active Substance: RABEPRAZOLE
     Dosage: THERAPY DURATION: 31 DAYS
     Route: 065
  210. RABEPRAZOLE [Suspect]
     Active Substance: RABEPRAZOLE
     Dosage: THERAPY DURATION: 31 DAYS
  211. RABEPRAZOLE [Suspect]
     Active Substance: RABEPRAZOLE
     Dosage: THERAPY DURATION: 28 DAYS
     Route: 065
  212. RABEPRAZOLE [Suspect]
     Active Substance: RABEPRAZOLE
     Dosage: THERAPY DURATION: 28 DAYS
  213. RABEPRAZOLE [Suspect]
     Active Substance: RABEPRAZOLE
     Dosage: THERAPY DURATION: 1 DAYS
     Route: 065
  214. RABEPRAZOLE [Suspect]
     Active Substance: RABEPRAZOLE
     Dosage: THERAPY DURATION: 1 DAYS
  215. RABEPRAZOLE [Suspect]
     Active Substance: RABEPRAZOLE
     Dosage: THERAPY DURATION: 23 DAYS
     Route: 065
  216. RABEPRAZOLE [Suspect]
     Active Substance: RABEPRAZOLE
     Dosage: THERAPY DURATION: 23 DAYS
  217. RABEPRAZOLE [Suspect]
     Active Substance: RABEPRAZOLE
     Dosage: THERAPY DURATION: 147 DAYS
     Route: 065
  218. RABEPRAZOLE [Suspect]
     Active Substance: RABEPRAZOLE
     Dosage: THERAPY DURATION: 147 DAYS
  219. RABEPRAZOLE [Suspect]
     Active Substance: RABEPRAZOLE
     Dosage: THERAPY DURATION: 394 DAYS
     Route: 065
  220. RABEPRAZOLE [Suspect]
     Active Substance: RABEPRAZOLE
     Dosage: THERAPY DURATION: 394 DAYS
  221. RABEPRAZOLE [Suspect]
     Active Substance: RABEPRAZOLE
     Dosage: THERAPY DURATION: 159 DAYS
     Route: 065
  222. RABEPRAZOLE [Suspect]
     Active Substance: RABEPRAZOLE
     Dosage: THERAPY DURATION: 159 DAYS
  223. RABEPRAZOLE [Suspect]
     Active Substance: RABEPRAZOLE
     Dosage: THERAPY DURATION: 143 DAYS
     Route: 065
  224. RABEPRAZOLE [Suspect]
     Active Substance: RABEPRAZOLE
     Dosage: THERAPY DURATION: 143 DAYS
  225. RABEPRAZOLE [Suspect]
     Active Substance: RABEPRAZOLE
     Dosage: THERAPY DURATION: 6 DAYS
     Route: 065
  226. RABEPRAZOLE [Suspect]
     Active Substance: RABEPRAZOLE
     Dosage: THERAPY DURATION: 6 DAYS
  227. SUMATRIPTAN SUCCINATE [Suspect]
     Active Substance: SUMATRIPTAN SUCCINATE
     Indication: Migraine
     Dosage: THERAPY DURATION: 1 DAYS
     Route: 065
  228. SUMATRIPTAN SUCCINATE [Suspect]
     Active Substance: SUMATRIPTAN SUCCINATE
     Dosage: THERAPY DURATION: 1 DAYS
  229. SUMATRIPTAN SUCCINATE [Suspect]
     Active Substance: SUMATRIPTAN SUCCINATE
     Route: 065
  230. SUMATRIPTAN SUCCINATE [Suspect]
     Active Substance: SUMATRIPTAN SUCCINATE
  231. SUMATRIPTAN SUCCINATE [Suspect]
     Active Substance: SUMATRIPTAN SUCCINATE
     Route: 065
  232. SUMATRIPTAN SUCCINATE [Suspect]
     Active Substance: SUMATRIPTAN SUCCINATE
  233. TOPIRAMATE [Suspect]
     Active Substance: TOPIRAMATE
     Indication: Migraine
  234. TOPIRAMATE [Suspect]
     Active Substance: TOPIRAMATE
     Route: 065
  235. TOPIRAMATE [Suspect]
     Active Substance: TOPIRAMATE
  236. TOPIRAMATE [Suspect]
     Active Substance: TOPIRAMATE
     Route: 065
  237. TRAMADOL HYDROCHLORIDE [Suspect]
     Active Substance: TRAMADOL HYDROCHLORIDE
     Indication: Product used for unknown indication
  238. TRAMADOL HYDROCHLORIDE [Suspect]
     Active Substance: TRAMADOL HYDROCHLORIDE
     Route: 065
  239. TRAMADOL HYDROCHLORIDE [Suspect]
     Active Substance: TRAMADOL HYDROCHLORIDE
     Dosage: THERAPY DURATION: 1 DAYS
  240. TRAMADOL HYDROCHLORIDE [Suspect]
     Active Substance: TRAMADOL HYDROCHLORIDE
     Dosage: THERAPY DURATION: 1 DAYS
     Route: 065
  241. ALBUTEROL [Suspect]
     Active Substance: ALBUTEROL
     Indication: Product used for unknown indication
     Dosage: DOSE FORM: METERED-DOSE (AEROSOL); THERAPY DURATION: 1 DAYS
     Route: 065
  242. ALBUTEROL [Suspect]
     Active Substance: ALBUTEROL
     Dosage: DOSE FORM: METERED-DOSE (AEROSOL); THERAPY DURATION: 1 DAYS
  243. ALBUTEROL [Suspect]
     Active Substance: ALBUTEROL
     Dosage: THERAPY DURATION: 1 DAYS
     Route: 065
  244. ALBUTEROL [Suspect]
     Active Substance: ALBUTEROL
     Dosage: THERAPY DURATION: 1 DAYS
  245. SCOPOLAMINE HYDROBROMIDE [Suspect]
     Active Substance: SCOPOLAMINE HYDROBROMIDE
     Indication: Migraine
  246. SCOPOLAMINE HYDROBROMIDE [Suspect]
     Active Substance: SCOPOLAMINE HYDROBROMIDE
     Route: 065
  247. SERTRALINE HYDROCHLORIDE [Suspect]
     Active Substance: SERTRALINE HYDROCHLORIDE
     Indication: Migraine
     Route: 065
  248. SERTRALINE HYDROCHLORIDE [Suspect]
     Active Substance: SERTRALINE HYDROCHLORIDE
  249. SERTRALINE HYDROCHLORIDE [Suspect]
     Active Substance: SERTRALINE HYDROCHLORIDE
     Route: 065
  250. SERTRALINE HYDROCHLORIDE [Suspect]
     Active Substance: SERTRALINE HYDROCHLORIDE
  251. TRIMETHOPRIM [Suspect]
     Active Substance: TRIMETHOPRIM
     Indication: Product used for unknown indication
  252. TRIMETHOPRIM [Suspect]
     Active Substance: TRIMETHOPRIM
     Route: 065
  253. VENLAFAXINE HYDROCHLORIDE [Suspect]
     Active Substance: VENLAFAXINE HYDROCHLORIDE
     Indication: Product used for unknown indication
     Route: 065
  254. VENLAFAXINE HYDROCHLORIDE [Suspect]
     Active Substance: VENLAFAXINE HYDROCHLORIDE
  255. VENLAFAXINE HYDROCHLORIDE [Suspect]
     Active Substance: VENLAFAXINE HYDROCHLORIDE
     Dosage: UNK
     Route: 065
  256. VENLAFAXINE HYDROCHLORIDE [Suspect]
     Active Substance: VENLAFAXINE HYDROCHLORIDE
     Dosage: UNK
  257. ZOLMITRIPTAN [Suspect]
     Active Substance: ZOLMITRIPTAN
     Indication: Product used for unknown indication
  258. ZOLMITRIPTAN [Suspect]
     Active Substance: ZOLMITRIPTAN
     Route: 065
  259. ZOPICLONE [Suspect]
     Active Substance: ZOPICLONE
     Indication: Migraine
     Dosage: THERAPY DURATION: 61 DAYS
     Route: 065
  260. ZOPICLONE [Suspect]
     Active Substance: ZOPICLONE
     Dosage: THERAPY DURATION: 61 DAYS
  261. ZOPICLONE [Suspect]
     Active Substance: ZOPICLONE
     Dosage: THERAPY DURATION: 83 DAYS
  262. ZOPICLONE [Suspect]
     Active Substance: ZOPICLONE
     Dosage: THERAPY DURATION: 83 DAYS
     Route: 065
  263. ZOPICLONE [Suspect]
     Active Substance: ZOPICLONE
     Dosage: THERAPY DURATION: 67 DAYS
     Route: 065
  264. ZOPICLONE [Suspect]
     Active Substance: ZOPICLONE
     Dosage: THERAPY DURATION: 67 DAYS
  265. ZOPICLONE [Suspect]
     Active Substance: ZOPICLONE
     Dosage: THERAPY DURATION: 62 DAYS
     Route: 065
  266. ZOPICLONE [Suspect]
     Active Substance: ZOPICLONE
     Dosage: THERAPY DURATION: 62 DAYS
  267. ZOPICLONE [Suspect]
     Active Substance: ZOPICLONE
     Dosage: THERAPY DURATION: 141 DAYS
     Route: 065
  268. ZOPICLONE [Suspect]
     Active Substance: ZOPICLONE
     Dosage: THERAPY DURATION: 141 DAYS
  269. ZOPICLONE [Suspect]
     Active Substance: ZOPICLONE
     Dosage: THERAPY DURATION: 55 DAYS
  270. ZOPICLONE [Suspect]
     Active Substance: ZOPICLONE
     Dosage: THERAPY DURATION: 55 DAYS
     Route: 065
  271. ZOPICLONE [Suspect]
     Active Substance: ZOPICLONE
     Dosage: THERAPY DURATION: 58 DAYS
  272. ZOPICLONE [Suspect]
     Active Substance: ZOPICLONE
     Dosage: THERAPY DURATION: 58 DAYS
     Route: 065
  273. ZOPICLONE [Suspect]
     Active Substance: ZOPICLONE
     Dosage: THERAPY DURATION: 45 DAYS
     Route: 065
  274. ZOPICLONE [Suspect]
     Active Substance: ZOPICLONE
     Dosage: THERAPY DURATION: 45 DAYS
  275. ZOPICLONE [Suspect]
     Active Substance: ZOPICLONE
     Dosage: THERAPY DURATION: 56 DAYS
  276. ZOPICLONE [Suspect]
     Active Substance: ZOPICLONE
     Dosage: THERAPY DURATION: 56 DAYS
     Route: 065
  277. ZOPICLONE [Suspect]
     Active Substance: ZOPICLONE
     Dosage: THERAPY DURATION: 1 DAYS
     Route: 065
  278. ZOPICLONE [Suspect]
     Active Substance: ZOPICLONE
     Dosage: THERAPY DURATION: 1 DAYS
  279. ZOPICLONE [Suspect]
     Active Substance: ZOPICLONE
     Dosage: THERAPY DURATION: 94 DAYS
  280. ZOPICLONE [Suspect]
     Active Substance: ZOPICLONE
     Dosage: THERAPY DURATION: 94 DAYS
     Route: 065
  281. ZOPICLONE [Suspect]
     Active Substance: ZOPICLONE
     Dosage: THERAPY DURATION: 52 DAYS
     Route: 065
  282. ZOPICLONE [Suspect]
     Active Substance: ZOPICLONE
     Dosage: THERAPY DURATION: 52 DAYS
  283. ZOPICLONE [Suspect]
     Active Substance: ZOPICLONE
     Dosage: THERAPY DURATION: 53 DAYS
  284. ZOPICLONE [Suspect]
     Active Substance: ZOPICLONE
     Dosage: THERAPY DURATION: 53 DAYS
     Route: 065
  285. ZOPICLONE [Suspect]
     Active Substance: ZOPICLONE
     Dosage: THERAPY DURATION: 73 DAYS
     Route: 065
  286. ZOPICLONE [Suspect]
     Active Substance: ZOPICLONE
     Dosage: THERAPY DURATION: 73 DAYS
  287. ZOPICLONE [Suspect]
     Active Substance: ZOPICLONE
     Dosage: THERAPY DURATION: 59 DAYS
  288. ZOPICLONE [Suspect]
     Active Substance: ZOPICLONE
     Dosage: THERAPY DURATION: 59 DAYS
     Route: 065
  289. ZOPICLONE [Suspect]
     Active Substance: ZOPICLONE
     Route: 065
  290. ZOPICLONE [Suspect]
     Active Substance: ZOPICLONE
  291. ZOPICLONE [Suspect]
     Active Substance: ZOPICLONE
  292. ZOPICLONE [Suspect]
     Active Substance: ZOPICLONE
     Route: 065
  293. ZOPICLONE [Suspect]
     Active Substance: ZOPICLONE
     Dosage: THERAPY DURATION: 47 DAYS
     Route: 065
  294. ZOPICLONE [Suspect]
     Active Substance: ZOPICLONE
     Dosage: THERAPY DURATION: 47 DAYS
  295. ZOPICLONE [Suspect]
     Active Substance: ZOPICLONE
     Dosage: THERAPY DURATION: 37 DAYS; UNKNOWN
     Route: 065
  296. ZOPICLONE [Suspect]
     Active Substance: ZOPICLONE
     Dosage: THERAPY DURATION: 37 DAYS; UNKNOWN
  297. ESCITALOPRAM [Suspect]
     Active Substance: ESCITALOPRAM OXALATE
  298. ESCITALOPRAM [Suspect]
     Active Substance: ESCITALOPRAM OXALATE
     Route: 065
  299. ACETAMINOPHEN [Concomitant]
     Active Substance: ACETAMINOPHEN
     Indication: Product used for unknown indication
  300. ACETAMINOPHEN [Concomitant]
     Active Substance: ACETAMINOPHEN
     Route: 065
  301. AZITHROMYCIN [Concomitant]
     Active Substance: AZITHROMYCIN
     Indication: Product used for unknown indication
  302. AZITHROMYCIN [Concomitant]
     Active Substance: AZITHROMYCIN
     Route: 065
  303. CEFUROXIME SODIUM [Concomitant]
     Active Substance: CEFUROXIME SODIUM
     Indication: Product used for unknown indication
  304. CEFUROXIME SODIUM [Concomitant]
     Active Substance: CEFUROXIME SODIUM
     Route: 065
  305. CEPHALEXIN [Concomitant]
     Active Substance: CEPHALEXIN
     Indication: Product used for unknown indication
  306. CEPHALEXIN [Concomitant]
     Active Substance: CEPHALEXIN
     Route: 065
  307. DANAZOL [Concomitant]
     Active Substance: DANAZOL
     Indication: Product used for unknown indication
  308. DANAZOL [Concomitant]
     Active Substance: DANAZOL
     Route: 065
  309. CYMBALTA [Concomitant]
     Active Substance: DULOXETINE HYDROCHLORIDE
     Indication: Product used for unknown indication
  310. CYMBALTA [Concomitant]
     Active Substance: DULOXETINE HYDROCHLORIDE
     Route: 065
  311. FERROUS FUMARATE [Concomitant]
     Active Substance: FERROUS FUMARATE
     Indication: Product used for unknown indication
  312. FERROUS FUMARATE [Concomitant]
     Active Substance: FERROUS FUMARATE
     Route: 065
  313. FLUOXETINE HYDROCHLORIDE [Concomitant]
     Active Substance: FLUOXETINE HYDROCHLORIDE
     Indication: Product used for unknown indication
  314. FLUOXETINE HYDROCHLORIDE [Concomitant]
     Active Substance: FLUOXETINE HYDROCHLORIDE
     Route: 065
  315. FLUTICASONE [Concomitant]
     Active Substance: FLUTICASONE
     Indication: Product used for unknown indication
  316. FLUTICASONE [Concomitant]
     Active Substance: FLUTICASONE
     Route: 065
  317. FROVATRIPTAN [Concomitant]
     Active Substance: FROVATRIPTAN
     Indication: Product used for unknown indication
  318. FROVATRIPTAN [Concomitant]
     Active Substance: FROVATRIPTAN
     Route: 065
  319. POLYETHYLENE GLYCOL 3350 [Concomitant]
     Active Substance: POLYETHYLENE GLYCOL 3350
     Indication: Product used for unknown indication
  320. POLYETHYLENE GLYCOL 3350 [Concomitant]
     Active Substance: POLYETHYLENE GLYCOL 3350
     Route: 065
  321. METOCLOPRAMIDE [Concomitant]
     Active Substance: METOCLOPRAMIDE
     Indication: Product used for unknown indication
  322. METOCLOPRAMIDE [Concomitant]
     Active Substance: METOCLOPRAMIDE
     Route: 065
  323. MACROBID [Concomitant]
     Active Substance: NITROFURANTOIN\NITROFURANTOIN MONOHYDRATE
     Indication: Product used for unknown indication
  324. MACROBID [Concomitant]
     Active Substance: NITROFURANTOIN\NITROFURANTOIN MONOHYDRATE
     Route: 065
  325. METRONIDAZOLE [Concomitant]
     Active Substance: METRONIDAZOLE
     Indication: Product used for unknown indication
  326. METRONIDAZOLE [Concomitant]
     Active Substance: METRONIDAZOLE
     Route: 065
  327. MORPHINE SULFATE [Concomitant]
     Active Substance: MORPHINE SULFATE
     Indication: Product used for unknown indication
  328. MORPHINE SULFATE [Concomitant]
     Active Substance: MORPHINE SULFATE
     Route: 065
  329. NAPROXEN [Concomitant]
     Active Substance: NAPROXEN
     Indication: Product used for unknown indication
  330. NAPROXEN [Concomitant]
     Active Substance: NAPROXEN
     Route: 065
  331. OSELTAMIVIR PHOSPHATE [Concomitant]
     Active Substance: OSELTAMIVIR PHOSPHATE
     Indication: Product used for unknown indication
  332. OSELTAMIVIR PHOSPHATE [Concomitant]
     Active Substance: OSELTAMIVIR PHOSPHATE
     Route: 065
  333. PANTOPRAZOLE SODIUM [Concomitant]
     Active Substance: PANTOPRAZOLE SODIUM
     Indication: Product used for unknown indication
  334. PANTOPRAZOLE SODIUM [Concomitant]
     Active Substance: PANTOPRAZOLE SODIUM
     Route: 065
  335. SULFAMETHOXAZOLE\TRIMETHOPRIM [Concomitant]
     Active Substance: SULFAMETHOXAZOLE\TRIMETHOPRIM
     Indication: Product used for unknown indication
  336. SULFAMETHOXAZOLE\TRIMETHOPRIM [Concomitant]
     Active Substance: SULFAMETHOXAZOLE\TRIMETHOPRIM
     Route: 065

REACTIONS (9)
  - Angioedema [Unknown]
  - Headache [Unknown]
  - Drug intolerance [Unknown]
  - Off label use [Unknown]
  - Swelling face [Unknown]
  - Dysphonia [Unknown]
  - Swollen tongue [Unknown]
  - Drug ineffective for unapproved indication [Unknown]
  - Hypersensitivity [Unknown]
